FAERS Safety Report 18444535 (Version 3)
Quarter: 2020Q4

REPORT INFORMATION
  Report Type: Other
  Country: LV (occurrence: LV)
  Receive Date: 20201030
  Receipt Date: 20201209
  Transmission Date: 20210114
  Serious: Yes (Death, Other)
  Sender: FDA-Public Use
  Company Number: LV-ROCHE-2703608

PATIENT
  Age: 53 Year
  Sex: Female

DRUGS (4)
  1. DEXAMETHASONE. [Concomitant]
     Active Substance: DEXAMETHASONE
     Indication: PRODUCT USED FOR UNKNOWN INDICATION
     Dosage: UNK
     Route: 037
  2. RITUXIMAB. [Suspect]
     Active Substance: RITUXIMAB
     Indication: NON-HODGKIN^S LYMPHOMA
     Route: 041
  3. BENDAMUSTINE [Suspect]
     Active Substance: BENDAMUSTINE
     Route: 065
  4. BENDAMUSTINE [Suspect]
     Active Substance: BENDAMUSTINE
     Indication: NON-HODGKIN^S LYMPHOMA
     Route: 065

REACTIONS (5)
  - Herpes zoster [Unknown]
  - Progressive multifocal leukoencephalopathy [Fatal]
  - Lymphopenia [Unknown]
  - Neutropenia [Unknown]
  - Thrombocytopenia [Unknown]
